FAERS Safety Report 22227831 (Version 2)
Quarter: 2023Q2

REPORT INFORMATION
  Report Type: Spontaneous
  Country: CA (occurrence: None)
  Receive Date: 20230419
  Receipt Date: 20230428
  Transmission Date: 20230721
  Serious: Yes (Other)
  Sender: FDA-Public Use
  Company Number: CA-Unichem Pharmaceuticals (USA) Inc-UCM202304-000408

PATIENT
  Age: 46 Year
  Sex: Female

DRUGS (8)
  1. BACLOFEN [Suspect]
     Active Substance: BACLOFEN
     Indication: Multiple sclerosis
     Dosage: UNKNOWN
  2. BACLOFEN [Suspect]
     Active Substance: BACLOFEN
     Dosage: DOUBLED
  3. BACLOFEN [Suspect]
     Active Substance: BACLOFEN
     Dosage: DECREASED TO HALF DOSE
  4. TIAGABINE [Suspect]
     Active Substance: TIAGABINE
     Indication: Multiple sclerosis
  5. GABAPENTIN [Suspect]
     Active Substance: GABAPENTIN
     Indication: Muscle spasms
     Dosage: UNKNOWN
  6. GABAPENTIN [Suspect]
     Active Substance: GABAPENTIN
     Dosage: DOUBLED
  7. PROPRANOLOL [Concomitant]
     Active Substance: PROPRANOLOL HYDROCHLORIDE
     Indication: Multiple sclerosis
  8. DALFAMPRIDINE [Concomitant]
     Active Substance: DALFAMPRIDINE
     Indication: Multiple sclerosis

REACTIONS (2)
  - Toxic encephalopathy [Recovering/Resolving]
  - Myoclonus [Recovered/Resolved]
